FAERS Safety Report 12493423 (Version 4)
Quarter: 2016Q3

REPORT INFORMATION
  Report Type: Spontaneous
  Country: TW (occurrence: TW)
  Receive Date: 20160623
  Receipt Date: 20160713
  Transmission Date: 20161109
  Serious: Yes (Death, Other)
  Sender: FDA-Public Use
  Company Number: TW-BAYER-2016-118132

PATIENT
  Sex: Male

DRUGS (4)
  1. CELLULOSE MICROCRYSTALLINE [Concomitant]
  2. STIVARGA [Suspect]
     Active Substance: REGORAFENIB
     Indication: METASTASES TO LIVER
     Dosage: 4 PILLS ONCE DAILY
     Dates: start: 2016
  3. STIVARGA [Suspect]
     Active Substance: REGORAFENIB
     Indication: COLORECTAL CANCER STAGE IV
     Dosage: UNK
     Dates: start: 201310
  4. MAGNESIUM STEARATE [Concomitant]
     Active Substance: MAGNESIUM STEARATE

REACTIONS (15)
  - Localised oedema [None]
  - Abdominal pain upper [None]
  - Liver function test increased [None]
  - Oedema genital [None]
  - Hepatic function abnormal [Not Recovered/Not Resolved]
  - Chest X-ray abnormal [None]
  - Oedema peripheral [None]
  - Decreased appetite [None]
  - Coma hepatic [Fatal]
  - Hepatic failure [Fatal]
  - Ascites [None]
  - Palmar-plantar erythrodysaesthesia syndrome [Not Recovered/Not Resolved]
  - Jaundice [Not Recovered/Not Resolved]
  - Chromaturia [None]
  - Pleural effusion [None]

NARRATIVE: CASE EVENT DATE: 201511
